FAERS Safety Report 4713394-4 (Version None)
Quarter: 2005Q3

REPORT INFORMATION
  Report Type: 
  Country: None (occurrence: None)
  Receive Date: 20050711
  Receipt Date: 20050624
  Transmission Date: 20060218
  Serious: Yes (Life-Threatening)
  Sender: FDA-Public Use
  Company Number: 212866

PATIENT
  Age: 58 Year
  Sex: Male
  Weight: 79 kg

DRUGS (7)
  1. MABTHERA(RITUXIMAB) CONC FOR SOLUTION FOR INFUSION [Suspect]
     Indication: NON-HODGKIN'S LYMPHOMA
     Dosage: 700 MG, INTRAVENOUS
     Route: 042
     Dates: start: 20030401, end: 20030610
  2. CYCLOPHOSPHAMIDE [Suspect]
     Indication: NON-HODGKIN'S LYMPHOMA
     Dosage: 1400 MG, INTRAVENOUS
     Route: 042
     Dates: start: 20030214, end: 20030616
  3. ADRIABLASTINE(DOXORUBICIN, DOXORUBICIN HYDROCHLORIDE) [Suspect]
     Indication: NON-HODGKIN'S LYMPHOMA
     Dosage: 90 MG, INTRAVENOUS
     Route: 042
     Dates: start: 20030214, end: 20030616
  4. VINCRISTINE [Suspect]
     Indication: NON-HODGKIN'S LYMPHOMA
     Dosage: 2 MG
     Dates: start: 20030214, end: 20030616
  5. PREDNISONE [Suspect]
     Indication: NON-HODGKIN'S LYMPHOMA
     Dosage: 300 MG, ORAL
     Route: 048
     Dates: start: 20030214, end: 20030620
  6. CASODEX [Concomitant]
  7. DECAPEPTYL (TRIPTORELIN) [Concomitant]

REACTIONS (4)
  - BONE PAIN [None]
  - METASTASES TO BONE [None]
  - NEOPLASM PROGRESSION [None]
  - PROSTATIC SPECIFIC ANTIGEN INCREASED [None]
